FAERS Safety Report 13052524 (Version 2)
Quarter: 2016Q4

REPORT INFORMATION
  Report Type: Spontaneous
  Country: GB (occurrence: GB)
  Receive Date: 20161221
  Receipt Date: 20161230
  Transmission Date: 20170207
  Serious: Yes (Hospitalization)
  Sender: FDA-Public Use
  Company Number: GB-BIOMARINAP-GB-2016-112214

PATIENT
  Sex: Male

DRUGS (1)
  1. ALDURAZYME [Suspect]
     Active Substance: LARONIDASE
     Indication: PRODUCT USED FOR UNKNOWN INDICATION
     Dosage: 5500 IU, QW
     Route: 041
     Dates: end: 20161206

REACTIONS (2)
  - Lower respiratory tract infection [Unknown]
  - Embolism [Unknown]

NARRATIVE: CASE EVENT DATE: 2016
